FAERS Safety Report 4318958-8 (Version None)
Quarter: 2004Q1

REPORT INFORMATION
  Report Type: 
  Country: None (occurrence: None)
  Receive Date: 20040318
  Receipt Date: 20040305
  Transmission Date: 20041129
  Serious: Yes (Hospitalization)
  Sender: FDA-Public Use
  Company Number: CH-BRISTOL-MYERS SQUIBB COMPANY-12535241

PATIENT
  Age: 84 Year
  Sex: Female

DRUGS (7)
  1. POTASSIUM CHLORIDE [Suspect]
     Route: 048
     Dates: end: 20040123
  2. MODURETIC 5-50 [Interacting]
     Dosage: 75-7.5 MG
     Route: 048
     Dates: end: 20040123
  3. PERINDOPRIL [Interacting]
     Route: 048
     Dates: end: 20040123
  4. ALLOPURINOL [Concomitant]
  5. ASPIRIN [Concomitant]
  6. ATORVASTATIN CALCIUM [Concomitant]
  7. GLYBURIDE AND METFORMIN HCL [Concomitant]

REACTIONS (5)
  - ASTHENIA [None]
  - BLOOD CREATININE INCREASED [None]
  - BLOOD GLUCOSE INCREASED [None]
  - DRUG INTERACTION [None]
  - HYPERKALAEMIA [None]
